FAERS Safety Report 25585909 (Version 1)
Quarter: 2025Q3

REPORT INFORMATION
  Report Type: Report from Study
  Country: US (occurrence: US)
  Receive Date: 20250721
  Receipt Date: 20250721
  Transmission Date: 20251020
  Serious: Yes (Hospitalization)
  Sender: ABBVIE
  Company Number: US-ABBVIE-6379258

PATIENT
  Age: 62 Year
  Sex: Male

DRUGS (1)
  1. VYALEV [Suspect]
     Active Substance: FOSCARBIDOPA\FOSLEVODOPA
     Indication: Parkinson^s disease
     Route: 058
     Dates: start: 20250426

REACTIONS (4)
  - Heart rate irregular [Unknown]
  - Headache [Unknown]
  - Dysarthria [Unknown]
  - Nausea [Unknown]

NARRATIVE: CASE EVENT DATE: 20250701
